FAERS Safety Report 18550004 (Version 2)
Quarter: 2020Q4

REPORT INFORMATION
  Report Type: Spontaneous
  Country: UA (occurrence: UA)
  Receive Date: 20201126
  Receipt Date: 20201207
  Transmission Date: 20210114
  Serious: No
  Sender: FDA-Public Use
  Company Number: UA-TEVA-2020-UA-1852741

PATIENT
  Age: 35 Year
  Sex: Female

DRUGS (4)
  1. MYORIX [Suspect]
     Active Substance: CYCLOBENZAPRINE HYDROCHLORIDE
     Indication: MUSCLE SPASMS
  2. PREGABALIN. [Concomitant]
     Active Substance: PREGABALIN
     Dates: start: 20201015
  3. XEFOCAM RAPID [Concomitant]
     Active Substance: LORNOXICAM
     Dates: start: 20201015
  4. MYORIX [Suspect]
     Active Substance: CYCLOBENZAPRINE HYDROCHLORIDE
     Indication: BACK PAIN
     Dosage: 15 MILLIGRAM DAILY;
     Route: 048
     Dates: start: 20201015

REACTIONS (1)
  - Swelling face [Unknown]

NARRATIVE: CASE EVENT DATE: 20201016
